FAERS Safety Report 10565189 (Version 1)
Quarter: 2014Q4

REPORT INFORMATION
  Report Type: Spontaneous
  Country: US (occurrence: None)
  Receive Date: 20141104
  Receipt Date: 20141104
  Transmission Date: 20150529
  Serious: Yes (Hospitalization)
  Sender: FDA-Public Use
  Company Number: None

PATIENT
  Age: 51 Year
  Sex: Male
  Weight: 97.1 kg

DRUGS (1)
  1. CISPLATIN. [Suspect]
     Active Substance: CISPLATIN
     Dosage: COMPLETED TWO CYCLES OF HIGH DOSE CISPLATIN AT DOSE OF 100 MG/M2; TOTAL DOSE EACH CYCLE = 228 MG.  TOTAL OF 456 MAY RECEIVED.

REACTIONS (5)
  - Pain [None]
  - Dysphagia [None]
  - Mouth haemorrhage [None]
  - Dry mouth [None]
  - Cough [None]

NARRATIVE: CASE EVENT DATE: 20141014
